FAERS Safety Report 5603794-2 (Version None)
Quarter: 2008Q1

REPORT INFORMATION
  Report Type: 
  Country: None (occurrence: None)
  Receive Date: 20080122
  Receipt Date: 20080109
  Transmission Date: 20080703
  Serious: Yes (Death, Other)
  Sender: FDA-Public Use
  Company Number: 070911-0000836

PATIENT
  Sex: Male

DRUGS (4)
  1. NEOPROFEN [Suspect]
     Indication: PATENT DUCTUS ARTERIOSUS
     Dosage: IV; IV; IV
     Route: 042
  2. TPN [Concomitant]
  3. ANTIBIOTICS [Concomitant]
  4. LIPIDS [Concomitant]

REACTIONS (4)
  - INCORRECT DRUG ADMINISTRATION DURATION [None]
  - INFECTION [None]
  - NECROTISING ENTEROCOLITIS NEONATAL [None]
  - RENAL FAILURE NEONATAL [None]
